FAERS Safety Report 11377566 (Version 1)
Quarter: 2015Q3

REPORT INFORMATION
  Report Type: Spontaneous
  Country: US (occurrence: US)
  Receive Date: 20150811
  Receipt Date: 20150811
  Transmission Date: 20151125
  Serious: No
  Sender: FDA-Public Use
  Company Number: US-ELI_LILLY_AND_COMPANY-US200903000335

PATIENT
  Age: 68 Year
  Sex: Male

DRUGS (3)
  1. HUMULIN 70/30 [Suspect]
     Active Substance: INSULIN HUMAN
  2. GLIPIZIDE. [Concomitant]
     Active Substance: GLIPIZIDE
     Indication: DIABETES MELLITUS
     Dosage: UNK, DAILY (1/D)
  3. HUMULIN 70/30 [Suspect]
     Active Substance: INSULIN HUMAN
     Indication: DIABETES MELLITUS
     Dates: start: 2001

REACTIONS (4)
  - Cold sweat [Recovered/Resolved]
  - Blood glucose decreased [Unknown]
  - Blood glucose increased [Not Recovered/Not Resolved]
  - Hyperhidrosis [Recovered/Resolved]

NARRATIVE: CASE EVENT DATE: 20090222
